FAERS Safety Report 15955050 (Version 1)
Quarter: 2019Q1

REPORT INFORMATION
  Report Type: Spontaneous
  Country: US (occurrence: US)
  Receive Date: 20190213
  Receipt Date: 20190213
  Transmission Date: 20190417
  Serious: No
  Sender: FDA-Public Use
  Company Number: US-PFIZER INC-2019055779

PATIENT
  Age: 26 Year
  Sex: Female
  Weight: 54.43 kg

DRUGS (3)
  1. ADVIL [Suspect]
     Active Substance: IBUPROFEN
     Dosage: UNK (I TOOK TWO EVERY FOUR TO SIX HOURS)
  2. ADVIL [Suspect]
     Active Substance: IBUPROFEN
     Dosage: 400 MG, UNK (I TOOK 400 MG EACH TIME I TOOK IT)
  3. ADVIL [Suspect]
     Active Substance: IBUPROFEN
     Indication: HEADACHE
     Dosage: UNK (. I TOOK TWO OF THOSE AT PROBABLY 4:30 AND THEN TWO MORE AT PROBABLY 8 )
     Route: 048

REACTIONS (3)
  - Paraesthesia [Not Recovered/Not Resolved]
  - Hypoaesthesia [Not Recovered/Not Resolved]
  - Drug hypersensitivity [Not Recovered/Not Resolved]

NARRATIVE: CASE EVENT DATE: 20190202
